FAERS Safety Report 17153290 (Version 7)
Quarter: 2022Q2

REPORT INFORMATION
  Report Type: Spontaneous
  Country: JP (occurrence: JP)
  Receive Date: 20191213
  Receipt Date: 20220606
  Transmission Date: 20220721
  Serious: Yes (Life-Threatening, Other)
  Sender: FDA-Public Use
  Company Number: JP-MSD-1912JPN001974J

PATIENT
  Age: 70 Year
  Sex: Male
  Weight: 58 kg

DRUGS (7)
  1. KEYTRUDA [Suspect]
     Active Substance: PEMBROLIZUMAB
     Indication: Lung squamous cell carcinoma stage III
     Dosage: 200 MILLIGRAM, Q3W
     Route: 041
     Dates: start: 20180822, end: 20180822
  2. CALONAL [Concomitant]
     Active Substance: ACETAMINOPHEN
     Indication: Chest pain
     Dosage: 600 MILLIGRAM, TID
     Route: 048
     Dates: start: 20180807, end: 20181001
  3. MORPHINE HYDROCHLORIDE [Concomitant]
     Active Substance: MORPHINE HYDROCHLORIDE
     Indication: Chest pain
     Dosage: 5 MILLIGRAM, PRN
     Route: 048
     Dates: start: 20180807, end: 20181001
  4. CODEINE PHOSPHATE [Concomitant]
     Active Substance: CODEINE PHOSPHATE
     Indication: Chest pain
     Dosage: 20 MILLIGRAM, QID
     Route: 048
     Dates: start: 20180815, end: 20180910
  5. SYMPROIC [Concomitant]
     Active Substance: NALDEMEDINE
     Indication: Constipation
     Dosage: 0.2 MILLIGRAM, QD
     Route: 048
     Dates: start: 20180815, end: 20181001
  6. NAPROXEN [Concomitant]
     Active Substance: NAPROXEN
     Indication: Chest pain
     Dosage: 100 MILLIGRAM, TID
     Route: 048
     Dates: start: 20180630, end: 20181001
  7. NAPROXEN [Concomitant]
     Active Substance: NAPROXEN
     Indication: Pyrexia

REACTIONS (4)
  - Infectious pleural effusion [Recovered/Resolved]
  - Bronchial fistula [Unknown]
  - Herpes zoster [Recovered/Resolved]
  - Iron deficiency anaemia [Recovered/Resolved]

NARRATIVE: CASE EVENT DATE: 20180829
